FAERS Safety Report 11610405 (Version 1)
Quarter: 2015Q4

REPORT INFORMATION
  Report Type: Spontaneous
  Country: US (occurrence: US)
  Receive Date: 20151008
  Receipt Date: 20151008
  Transmission Date: 20160304
  Serious: No
  Sender: FDA-Public Use
  Company Number: US-009507513-1509USA011618

PATIENT
  Age: 22 Year
  Sex: Female
  Weight: 91.61 kg

DRUGS (5)
  1. IBUPROFEN. [Concomitant]
     Active Substance: IBUPROFEN
  2. TYLENOL WITH CODEINE [Concomitant]
     Active Substance: ACETAMINOPHEN\CODEINE PHOSPHATE
  3. NEXPLANON [Suspect]
     Active Substance: ETONOGESTREL
     Indication: CONTRACEPTION
     Dosage: 1 IMPLANT/3 YEARS
     Route: 059
     Dates: start: 20150120
  4. TYLENOL [Concomitant]
     Active Substance: ACETAMINOPHEN
  5. EXCEDRIN [Concomitant]
     Active Substance: ACETAMINOPHEN\ASPIRIN\CAFFEINE

REACTIONS (12)
  - Abdominal pain upper [Unknown]
  - Menstrual disorder [Unknown]
  - Back pain [Unknown]
  - Medical device complication [Unknown]
  - Menstruation delayed [Unknown]
  - Device breakage [Unknown]
  - Implant site pain [Unknown]
  - Hypoaesthesia [Unknown]
  - Headache [Unknown]
  - Dyspnoea [Unknown]
  - Breast pain [Unknown]
  - Implant site swelling [Unknown]

NARRATIVE: CASE EVENT DATE: 2015
